FAERS Safety Report 5800904-9 (Version None)
Quarter: 2008Q3

REPORT INFORMATION
  Report Type: 
  Country: None (occurrence: None)
  Receive Date: 20080701
  Receipt Date: 20080604
  Transmission Date: 20090109
  Serious: Yes (Death, Hospitalization)
  Sender: FDA-Public Use
  Company Number: 08P-028-0459617-00

PATIENT
  Age: 18 Month
  Sex: Male

DRUGS (5)
  1. SYNAGIS [Suspect]
     Indication: ANTIVIRAL PROPHYLAXIS
     Dosage: (150 MG, 1 IN 28 D), INTRAMUSCULAR
     Route: 030
     Dates: start: 20080429, end: 20080429
  2. ALDACTAZIDE-A [Concomitant]
  3. CARVEDILOL [Concomitant]
  4. RANITIDINE HCL [Concomitant]
  5. FUROSEMIDE [Concomitant]

REACTIONS (2)
  - LUNG DISORDER [None]
  - RESPIRATORY DISTRESS [None]
